FAERS Safety Report 16323182 (Version 1)
Quarter: 2019Q2

REPORT INFORMATION
  Report Type: Spontaneous
  Country: US (occurrence: US)
  Receive Date: 20190517
  Receipt Date: 20190517
  Transmission Date: 20190711
  Serious: No
  Sender: FDA-Public Use
  Company Number: US-TEVA-2019-US-1042283

PATIENT
  Age: 50 Year
  Sex: Male
  Weight: 94.3 kg

DRUGS (30)
  1. GLUCOPHAGE 1000 MG [Concomitant]
     Route: 048
  2. MIRALAX [Concomitant]
     Active Substance: POLYETHYLENE GLYCOL 3350
     Dosage: TAKE 17 MG AS NEEDED
     Route: 048
  3. ATARAX [Concomitant]
     Active Substance: HYDROXYZINE HYDROCHLORIDE
     Dosage: TAKE 50 MG
     Route: 048
  4. SYNTHROID [Concomitant]
     Active Substance: LEVOTHYROXINE SODIUM
     Indication: THYROID HORMONE REPLACEMENT THERAPY
     Dosage: 50 MICROGRAM DAILY;
     Route: 048
  5. VICTOZA 18 MG/3 ML [Concomitant]
     Dosage: INJECT 1.8 MG INTO THE SKIN
  6. ULTRAM 50 MG [Concomitant]
     Dosage: 50 MILLIGRAM DAILY; EVERY EVENING
     Route: 048
  7. PROAIR HFA IN [Concomitant]
     Dosage: INHALE BY MOUTH 4 TIME DAILY AS NEEDED
     Route: 055
  8. ATROPINE 1% [Concomitant]
     Active Substance: ATROPINE
     Dosage: 2 DROPS TID PRN FOR SIALORRHEA
     Route: 060
  9. ASTELIN 0.1% [Concomitant]
     Indication: HYPERSENSITIVITY
     Dosage: TWO TIMES DAILY
     Route: 045
  10. COGENTIN 1 MG [Concomitant]
  11. AUSTEDO [Suspect]
     Active Substance: DEUTETRABENAZINE
     Indication: TARDIVE DYSKINESIA
     Dosage: NEW TITRATING PATIENT
     Route: 048
     Dates: start: 20180620
  12. FLONASE 50 MCG/ACT [Concomitant]
     Dosage: 1 SPRAY BY EACH NOSTRIL ROUTE DAILY, FOR NOSE ALLERGIES
  13. LANTUS SOLOSTAR 100 UNIT/ML SOPN [Concomitant]
     Dosage: INJECT 35 UNITS INTO THE SKIN TWO TIMES DAILY
  14. INDERAL 40 MG [Concomitant]
     Dosage: 80 MILLIGRAM DAILY;
     Route: 048
  15. 90 BASE MCG/ACT AEPB [Concomitant]
     Dosage: 2 PUFFS
     Route: 055
  16. PRAVACHOL 40 MG [Concomitant]
     Dosage: 80 MILLIGRAM DAILY;
     Route: 048
  17. AUSTEDO [Suspect]
     Active Substance: DEUTETRABENAZINE
     Dosage: 48 MILLIGRAM DAILY;
     Route: 048
  18. ASPIR-81 MG TBEC [Concomitant]
     Dosage: 81 MILLIGRAM DAILY;
     Route: 048
  19. CLOZARIL [Concomitant]
     Active Substance: CLOZAPINE
     Dosage: 100 MILLIGRAM DAILY;
     Route: 048
  20. COLACE [Concomitant]
     Active Substance: DOCUSATE SODIUM
     Dosage: TAKE 200 MG
     Route: 048
  21. LEXAPRO 20 MG [Concomitant]
     Dosage: TAKE 10 MG DAILY
  22. HUMALOG KWIKPEN 100 UNIT/ML SOPN [Concomitant]
     Dosage: INJECT 6 UNITS INTO THE SKIN 3 TIMES DAILY (BEFORE MEALS)
  23. FISH OIL 1200 MG [Concomitant]
     Route: 048
  24. PROTONIX [Concomitant]
     Active Substance: PANTOPRAZOLE SODIUM
     Dosage: 40 MILLIGRAM DAILY;
     Route: 048
  25. LINZESS [Concomitant]
     Active Substance: LINACLOTIDE
     Indication: CONSTIPATION
     Dosage: 72 MICROGRAM DAILY;
  26. BACITRACIN 500 UNITS/GRAM [Concomitant]
     Indication: INFECTION
     Dosage: APPLY TWO TIMES PER DAY TO FINGER
     Route: 061
  27. DOCOSAHEXANOIC ACID 100 MG [Concomitant]
     Dosage: 3 CAPSULES
     Route: 048
  28. DEPAKOTE [Concomitant]
     Active Substance: DIVALPROEX SODIUM
     Dosage: 2000 MG BY MOUTH EVERY EVENING
     Route: 048
  29. CHRONULAC 10 MG/15 ML [Concomitant]
     Dosage: TAKE 30 ML TWO TIMES DAILY
     Route: 048
  30. MELATONIN 3 MG [Concomitant]
     Route: 048

REACTIONS (1)
  - Salivary hypersecretion [Recovering/Resolving]

NARRATIVE: CASE EVENT DATE: 20180212
